FAERS Safety Report 15053982 (Version 2)
Quarter: 2018Q3

REPORT INFORMATION
  Report Type: Spontaneous
  Country: US (occurrence: US)
  Receive Date: 20180622
  Receipt Date: 20180709
  Transmission Date: 20181010
  Serious: Yes (Disabling, Other)
  Sender: FDA-Public Use
  Company Number: US-OTSUKA-2018_015773

PATIENT
  Sex: Male

DRUGS (9)
  1. ABILIFY [Suspect]
     Active Substance: ARIPIPRAZOLE
     Indication: DEPRESSION
     Dosage: 2 MG, QD
     Route: 065
     Dates: start: 201001
  2. ABILIFY [Suspect]
     Active Substance: ARIPIPRAZOLE
     Indication: ANXIETY
  3. ABILIFY [Suspect]
     Active Substance: ARIPIPRAZOLE
     Indication: POST-TRAUMATIC STRESS DISORDER
  4. ABILIFY [Suspect]
     Active Substance: ARIPIPRAZOLE
     Indication: IRRITABILITY
  5. ABILIFY [Suspect]
     Active Substance: ARIPIPRAZOLE
     Indication: AGITATION
     Dosage: 5 MG, QD
     Route: 065
     Dates: end: 201408
  6. ABILIFY [Suspect]
     Active Substance: ARIPIPRAZOLE
     Indication: INSOMNIA
  7. ABILIFY [Suspect]
     Active Substance: ARIPIPRAZOLE
     Indication: DEMENTIA
  8. ABILIFY [Suspect]
     Active Substance: ARIPIPRAZOLE
     Indication: SOCIAL ANXIETY DISORDER
  9. ABILIFY [Suspect]
     Active Substance: ARIPIPRAZOLE
     Indication: OBSESSIVE-COMPULSIVE DISORDER

REACTIONS (19)
  - Obsessive-compulsive disorder [Recovered/Resolved]
  - Trichotillomania [Recovered/Resolved]
  - Economic problem [Unknown]
  - Unintended pregnancy [Unknown]
  - Emotional distress [Unknown]
  - Eating disorder [Recovered/Resolved]
  - Pain [Unknown]
  - Anxiety [Unknown]
  - Injury [Unknown]
  - Condition aggravated [Unknown]
  - Compulsive shopping [Recovered/Resolved]
  - Product use in unapproved indication [Unknown]
  - Anhedonia [Unknown]
  - Compulsive hoarding [Recovered/Resolved]
  - Gambling disorder [Recovered/Resolved]
  - Disability [Unknown]
  - Weight increased [Unknown]
  - Compulsive sexual behaviour [Recovered/Resolved]
  - Dermatillomania [Recovered/Resolved]
